FAERS Safety Report 5084821-0 (Version None)
Quarter: 2006Q3

REPORT INFORMATION
  Report Type: 
  Country: None (occurrence: None)
  Receive Date: 20060815
  Receipt Date: 20060608
  Transmission Date: 20061208
  Serious: Yes (Life-Threatening, Hospitalization, Disabling, Other)
  Sender: FDA-Public Use
  Company Number: 601#1#2006-00003

PATIENT
  Age: 53 Year
  Sex: Male

DRUGS (7)
  1. ALPROSTADIL [Suspect]
     Indication: BODY TEMPERATURE INCREASED
     Dosage: 60 MCG (20 MCG 3 IN 3 HOUR(S)) INTRAVENOUS
     Route: 042
     Dates: start: 20060314, end: 20060330
  2. ALPROSTADIL [Suspect]
     Indication: CARDIAC FAILURE
     Dosage: 60 MCG (20 MCG 3 IN 3 HOUR(S)) INTRAVENOUS
     Route: 042
     Dates: start: 20060314, end: 20060330
  3. ALPROSTADIL [Suspect]
     Indication: MYOCARDITIS
     Dosage: 60 MCG (20 MCG 3 IN 3 HOUR(S)) INTRAVENOUS
     Route: 042
     Dates: start: 20060314, end: 20060330
  4. ALPROSTADIL [Suspect]
     Indication: PERIPHERAL ARTERIAL OCCLUSIVE DISEASE
     Dosage: 60 MCG (20 MCG 3 IN 3 HOUR(S)) INTRAVENOUS
     Route: 042
     Dates: start: 20060314, end: 20060330
  5. ALPROSTADIL [Suspect]
     Indication: PNEUMONIA
     Dosage: 60 MCG (20 MCG 3 IN 3 HOUR(S)) INTRAVENOUS
     Route: 042
     Dates: start: 20060314, end: 20060330
  6. ASPIRIN [Concomitant]
  7. PENTOXIFYLLINE [Concomitant]

REACTIONS (8)
  - ABSCESS [None]
  - BODY TEMPERATURE INCREASED [None]
  - CARDIAC FAILURE [None]
  - INFUSION RELATED REACTION [None]
  - MYOCARDIAL INFARCTION [None]
  - MYOCARDITIS [None]
  - PLEURISY [None]
  - PNEUMONIA STAPHYLOCOCCAL [None]
